FAERS Safety Report 9790278 (Version 2)
Quarter: 2014Q1

REPORT INFORMATION
  Report Type: Spontaneous
  Country: CH (occurrence: CH)
  Receive Date: 20131231
  Receipt Date: 20140107
  Transmission Date: 20141002
  Serious: Yes (Other)
  Sender: FDA-Public Use
  Company Number: CH-BAYER-2013-157047

PATIENT
  Age: 50 Year
  Sex: Male

DRUGS (2)
  1. NEXAVAR [Suspect]
     Indication: MEDULLARY THYROID CANCER
     Dosage: UNK
     Route: 048
     Dates: start: 20100902, end: 20110627
  2. ZOMETA [Concomitant]
     Dosage: UNK
     Route: 042
     Dates: start: 200905

REACTIONS (2)
  - Medullary thyroid cancer [Unknown]
  - Off label use [None]
